FAERS Safety Report 8967898 (Version 1)
Quarter: 2012Q4

REPORT INFORMATION
  Report Type: 
  Country: US (occurrence: US)
  Receive Date: 20121217
  Receipt Date: 20121217
  Transmission Date: 20130627
  Serious: No
  Sender: FDA-Public Use
  Company Number: US-009507513-1212USA005106

PATIENT
  Sex: Female

DRUGS (3)
  1. JANUMET [Suspect]
     Indication: DIABETES MELLITUS
     Dosage: 50/1000, qd
     Route: 048
     Dates: start: 20121015, end: 20121207
  2. ONGLYZA [Suspect]
  3. TRADJENTA [Suspect]

REACTIONS (5)
  - Feeling abnormal [Recovering/Resolving]
  - Oropharyngeal pain [Recovering/Resolving]
  - Headache [Unknown]
  - Malaise [Unknown]
  - Nasopharyngitis [Unknown]
